FAERS Safety Report 9956815 (Version 1)
Quarter: 2014Q1

REPORT INFORMATION
  Report Type: Report from Study
  Country: US (occurrence: US)
  Receive Date: 20140304
  Receipt Date: 20140304
  Transmission Date: 20141002
  Serious: No
  Sender: FDA-Public Use
  Company Number: US-ABBVIE-13P-163-1096314-00

PATIENT
  Age: 76 Year
  Sex: Female
  Weight: 90.8 kg

DRUGS (5)
  1. HUMIRA [Suspect]
     Indication: SERONEGATIVE ARTHRITIS
     Dates: start: 2007
  2. METHOTREXATE [Concomitant]
     Indication: SERONEGATIVE ARTHRITIS
  3. LOSARTAN [Concomitant]
     Indication: HYPERTENSION
  4. VERAPAMIL [Concomitant]
     Indication: HYPERTENSION
  5. ATORVASTATIN [Concomitant]
     Indication: HYPERCHOLESTEROLAEMIA

REACTIONS (2)
  - Lyme disease [Recovered/Resolved]
  - Mass [Recovered/Resolved]
